FAERS Safety Report 7274077-2 (Version None)
Quarter: 2011Q1

REPORT INFORMATION
  Report Type: 
  Country: None (occurrence: None)
  Receive Date: 20110204
  Receipt Date: 20110127
  Transmission Date: 20110831
  Serious: Yes (Other)
  Sender: FDA-Public Use
  Company Number: IT-AMGEN-ITASP2011005913

PATIENT
  Age: 58 Year
  Sex: Female

DRUGS (4)
  1. FOLINA [Concomitant]
     Dosage: UNK
  2. ENBREL [Suspect]
     Indication: RHEUMATOID ARTHRITIS
     Dosage: 50 MG, WEEKLY
     Dates: start: 20090903
  3. REUMAFLEX [Concomitant]
     Dosage: UNK
  4. MEDROL [Concomitant]
     Dosage: UNK

REACTIONS (2)
  - GASTROINTESTINAL INFECTION [None]
  - HYPERPYREXIA [None]
